FAERS Safety Report 13514547 (Version 2)
Quarter: 2017Q2

REPORT INFORMATION
  Report Type: Spontaneous
  Country: US (occurrence: US)
  Receive Date: 20170504
  Receipt Date: 20170518
  Transmission Date: 20170830
  Serious: Yes (Other)
  Sender: FDA-Public Use
  Company Number: US-AMGEN-USASP2017066286

PATIENT
  Age: 61 Year
  Sex: Female

DRUGS (1)
  1. PROLIA [Suspect]
     Active Substance: DENOSUMAB
     Indication: OSTEOPOROSIS POSTMENOPAUSAL
     Dosage: 60 MG, Q6MO
     Route: 058
     Dates: start: 2015

REACTIONS (12)
  - Arthralgia [Recovered/Resolved]
  - Erythema [Unknown]
  - Pneumonia [Recovered/Resolved]
  - Tooth infection [Unknown]
  - Lentigo [Unknown]
  - Bone pain [Recovered/Resolved]
  - Pleurisy [Unknown]
  - Seborrhoeic keratosis [Unknown]
  - Seborrhoeic dermatitis [Unknown]
  - Skin exfoliation [Unknown]
  - Cystitis [Unknown]
  - Jaw disorder [Not Recovered/Not Resolved]

NARRATIVE: CASE EVENT DATE: 201607
